FAERS Safety Report 21736858 (Version 4)
Quarter: 2023Q1

REPORT INFORMATION
  Report Type: Spontaneous
  Country: US (occurrence: US)
  Receive Date: 20221216
  Receipt Date: 20230327
  Transmission Date: 20230417
  Serious: No
  Sender: FDA-Public Use
  Company Number: US-BRISTOL-MYERS SQUIBB COMPANY-2022-153455

PATIENT
  Age: 61 Year
  Sex: Male

DRUGS (1)
  1. REVLIMID [Suspect]
     Active Substance: LENALIDOMIDE
     Indication: Plasma cell myeloma
     Route: 048
     Dates: start: 202210

REACTIONS (7)
  - Nasopharyngitis [Unknown]
  - Respiratory symptom [Unknown]
  - COVID-19 [Unknown]
  - Heart rate increased [Unknown]
  - Tremor [Unknown]
  - Feeling abnormal [Unknown]
  - Fatigue [Unknown]

NARRATIVE: CASE EVENT DATE: 20221214
